FAERS Safety Report 9193008 (Version 1)
Quarter: 2013Q1

REPORT INFORMATION
  Report Type: Spontaneous
  Country: US (occurrence: US)
  Receive Date: 20130327
  Receipt Date: 20130327
  Transmission Date: 20140127
  Serious: Yes (Other)
  Sender: FDA-Public Use
  Company Number: US-ASTRAZENECA-2013SE18073

PATIENT
  Age: 52 Year
  Sex: Female
  Weight: 65.8 kg

DRUGS (2)
  1. CRESTOR [Suspect]
     Indication: HYPERCHOLESTEROLAEMIA
     Route: 048
     Dates: start: 2005
  2. VITAMINS [Concomitant]
     Indication: SUPPLEMENTATION THERAPY

REACTIONS (4)
  - Vaginal prolapse [Unknown]
  - Muscle atrophy [Unknown]
  - Muscle spasms [Unknown]
  - Muscular weakness [Unknown]
